FAERS Safety Report 6249370-2 (Version None)
Quarter: 2009Q2

REPORT INFORMATION
  Report Type: 
  Country: None (occurrence: None)
  Receive Date: 20090629
  Receipt Date: 20090619
  Transmission Date: 20091009
  Serious: Yes (Hospitalization)
  Sender: FDA-Public Use
  Company Number: US-BIOGENIDEC-2006BI012108

PATIENT
  Age: 51 Year
  Sex: Female
  Weight: 102 kg

DRUGS (2)
  1. AVONEX [Suspect]
     Indication: MULTIPLE SCLEROSIS
     Route: 030
     Dates: start: 20050902
  2. LEXAPRO [Concomitant]
     Indication: STRESS

REACTIONS (7)
  - BURNING SENSATION [None]
  - ERYTHEMA [None]
  - FALL [None]
  - HERPES ZOSTER [None]
  - HYPOPHAGIA [None]
  - MALAISE [None]
  - PRURITUS [None]
